FAERS Safety Report 21066057 (Version 2)
Quarter: 2022Q3

REPORT INFORMATION
  Report Type: Spontaneous
  Country: US (occurrence: US)
  Receive Date: 20220711
  Receipt Date: 20220713
  Transmission Date: 20221027
  Serious: Yes (Hospitalization)
  Sender: FDA-Public Use
  Company Number: US-PFIZER INC-202200922810

PATIENT
  Age: 78 Year
  Sex: Male

DRUGS (3)
  1. PAXLOVID [Suspect]
     Active Substance: NIRMATRELVIR\RITONAVIR
     Indication: COVID-19 treatment
     Dosage: 3 DF, 2X/DAY, (BOX SAYS TO TAKE 2 NIRMATRELVIR TABLETS AND 1 RITONAVIR TABLET TOGETHER BY MOUTH TWIC
     Route: 048
     Dates: start: 20220629, end: 20220702
  2. ROSUVASTATIN [Concomitant]
     Active Substance: ROSUVASTATIN
     Indication: Blood cholesterol
     Dosage: UNK
  3. VALSARTAN [Concomitant]
     Active Substance: VALSARTAN
     Indication: Blood pressure measurement
     Dosage: UNK

REACTIONS (8)
  - Abdominal pain [Unknown]
  - Bladder obstruction [Unknown]
  - Prostatic disorder [Unknown]
  - Diarrhoea [Unknown]
  - Dysuria [Unknown]
  - Abdominal pain upper [Unknown]
  - Malaise [Unknown]
  - Product dose omission issue [Unknown]

NARRATIVE: CASE EVENT DATE: 20220701
